FAERS Safety Report 21924831 (Version 4)
Quarter: 2023Q1

REPORT INFORMATION
  Report Type: Report from Study
  Country: US (occurrence: US)
  Receive Date: 20230130
  Receipt Date: 20230329
  Transmission Date: 20230418
  Serious: Yes (Other)
  Sender: FDA-Public Use
  Company Number: US-002147023-NVSC2023US015629

PATIENT
  Sex: Male

DRUGS (11)
  1. ENTRESTO [Suspect]
     Active Substance: SACUBITRIL\VALSARTAN
     Indication: Cardiac failure
     Dosage: UNK
     Route: 065
     Dates: start: 2021
  2. ENTRESTO [Suspect]
     Active Substance: SACUBITRIL\VALSARTAN
     Dosage: 1 DOSAGE FORM, BID (HIGHEST DOSAGE, HE IS UNSURE OF PREVIOUS DOSAGE)
     Route: 048
     Dates: start: 20211120
  3. ENTRESTO [Suspect]
     Active Substance: SACUBITRIL\VALSARTAN
     Dosage: 0.5 DOSAGE FORM, BID (24/26 MG, ONE TABLET)
     Route: 048
     Dates: start: 202211
  4. ENTRESTO [Suspect]
     Active Substance: SACUBITRIL\VALSARTAN
     Dosage: UNK, QD (ONCE A DAY THE NEXT DAY)
     Route: 048
  5. AMBIEN [Concomitant]
     Active Substance: ZOLPIDEM TARTRATE
     Indication: Product used for unknown indication
     Dosage: UNK
     Route: 065
  6. LEDIPASVIR [Concomitant]
     Active Substance: LEDIPASVIR
     Indication: Product used for unknown indication
     Dosage: 1 DOSAGE FORM, QD (90)
     Route: 065
     Dates: start: 20221220
  7. SOFOSBUVIR [Concomitant]
     Active Substance: SOFOSBUVIR
     Indication: Product used for unknown indication
     Dosage: 400 MG, QD
     Route: 065
     Dates: start: 20221220
  8. ROSUVASTATIN [Concomitant]
     Active Substance: ROSUVASTATIN
     Indication: Product used for unknown indication
     Dosage: UNK, QD
     Route: 065
     Dates: start: 20230105
  9. TERAZOSIN [Concomitant]
     Active Substance: TERAZOSIN HYDROCHLORIDE
     Indication: Product used for unknown indication
     Dosage: UNK, QD
     Route: 065
     Dates: start: 20221031
  10. VYVANSE [Concomitant]
     Active Substance: LISDEXAMFETAMINE DIMESYLATE
     Indication: Product used for unknown indication
     Dosage: UNK, QD
     Route: 065
     Dates: start: 20221206
  11. ZOLPIDEM [Concomitant]
     Active Substance: ZOLPIDEM TARTRATE
     Indication: Product used for unknown indication
     Dosage: UNK, QD
     Route: 065
     Dates: start: 20230214

REACTIONS (18)
  - Thrombosis [Recovering/Resolving]
  - Loss of consciousness [Recovering/Resolving]
  - Hepatic failure [Not Recovered/Not Resolved]
  - Jaundice [Unknown]
  - Chromaturia [Unknown]
  - Fatigue [Unknown]
  - Nausea [Unknown]
  - Renal failure [Recovering/Resolving]
  - Renal impairment [Unknown]
  - Muscle spasms [Unknown]
  - Blood urine [Recovering/Resolving]
  - Road traffic accident [Recovering/Resolving]
  - Condition aggravated [Unknown]
  - Visual impairment [Unknown]
  - Malaise [Unknown]
  - Inappropriate schedule of product administration [Unknown]
  - Wrong technique in product usage process [Recovered/Resolved]
  - Drug ineffective [Unknown]

NARRATIVE: CASE EVENT DATE: 20220101
